FAERS Safety Report 4385809-5 (Version None)
Quarter: 2004Q2

REPORT INFORMATION
  Report Type: 
  Country: None (occurrence: None)
  Receive Date: 20040628
  Receipt Date: 20040513
  Transmission Date: 20050107
  Serious: Yes (Life-Threatening, Hospitalization)
  Sender: FDA-Public Use
  Company Number: FR-ROCHE-367795

PATIENT
  Age: 64 Year
  Sex: Female
  Weight: 71 kg

DRUGS (6)
  1. PEGASYS [Suspect]
     Indication: HEPATITIS C
     Route: 058
     Dates: start: 20030903, end: 20040110
  2. COPEGUS [Concomitant]
     Indication: HEPATITIS C
     Route: 048
     Dates: start: 20030903
  3. GAVISCON [Concomitant]
     Indication: DRUG USE FOR UNKNOWN INDICATION
     Dosage: LONG STANDING TREATMENT
     Route: 048
  4. DEBRIDAT [Concomitant]
     Indication: INTESTINAL FUNCTIONAL DISORDER
     Route: 048
     Dates: start: 19960615
  5. METEOSPASMYL [Concomitant]
     Indication: INTESTINAL FUNCTIONAL DISORDER
     Route: 048
     Dates: start: 19940615
  6. DILTIAZEM HCL [Concomitant]
     Route: 048
     Dates: start: 19950615

REACTIONS (18)
  - ACUTE PULMONARY OEDEMA [None]
  - ARRHYTHMIA [None]
  - ATRIAL FIBRILLATION [None]
  - BRONCHIAL INFECTION [None]
  - BRONCHOSPASM [None]
  - CARDIAC FAILURE [None]
  - CARDIAC FLUTTER [None]
  - COLON ADENOMA [None]
  - COLONIC POLYP [None]
  - DIARRHOEA HAEMORRHAGIC [None]
  - INTERSTITIAL LUNG DISEASE [None]
  - NEURITIS [None]
  - PERIPHERAL SENSORY NEUROPATHY [None]
  - PLEURAL EFFUSION [None]
  - RESPIRATORY FAILURE [None]
  - SIALOADENITIS [None]
  - SJOGREN'S SYNDROME [None]
  - STREPTOCOCCAL INFECTION [None]
